FAERS Safety Report 23302880 (Version 1)
Quarter: 2023Q4

REPORT INFORMATION
  Report Type: Spontaneous
  Country: CA (occurrence: CA)
  Receive Date: 20231215
  Receipt Date: 20231215
  Transmission Date: 20240110
  Serious: Yes (Other)
  Sender: FDA-Public Use
  Company Number: CA-FreseniusKabi-FK202320371

PATIENT
  Age: 52 Year
  Sex: Male

DRUGS (4)
  1. MORPHINE SULFATE [Suspect]
     Active Substance: MORPHINE SULFATE
     Indication: Pain
     Dosage: UNKNOWN
  2. DILAUDID [Suspect]
     Active Substance: HYDROMORPHONE HYDROCHLORIDE
     Indication: Pain
     Dosage: 4 MG?NOT SPECIFIED?ORAL
  3. HYDROMORPHONE HYDROCHLORIDE [Suspect]
     Active Substance: HYDROMORPHONE HYDROCHLORIDE
     Indication: Pain
     Dosage: 6 MG?TABLET?ORAL
  4. CODEINE [Suspect]
     Active Substance: CODEINE
     Indication: Product used for unknown indication
     Dosage: 30 MG

REACTIONS (10)
  - Bedridden [Unknown]
  - Cardiac disorder [Unknown]
  - Drug dependence [Unknown]
  - Drug ineffective [Unknown]
  - Drug tolerance [Unknown]
  - Drug withdrawal syndrome [Unknown]
  - Impaired work ability [Unknown]
  - Loss of consciousness [Unknown]
  - Road traffic accident [Unknown]
  - Suicide attempt [Unknown]
